FAERS Safety Report 19787565 (Version 1)
Quarter: 2021Q3

REPORT INFORMATION
  Report Type: Spontaneous
  Country: ES (occurrence: ES)
  Receive Date: 20210903
  Receipt Date: 20210903
  Transmission Date: 20211014
  Serious: Yes (Other)
  Sender: FDA-Public Use
  Company Number: ES-MYLANLABS-2021M1057685

PATIENT
  Age: 86 Year
  Sex: Male

DRUGS (2)
  1. ESLICARBAZEPINA [Interacting]
     Active Substance: ESLICARBAZEPINE
     Indication: SEIZURE
     Dosage: 800 MILLIGRAM, BID
     Route: 048
     Dates: start: 20171212, end: 20210316
  2. INDAPAMIDE MYLAN [Suspect]
     Active Substance: INDAPAMIDE
     Indication: HYPERTENSION
     Dosage: 2.5 MILLIGRAM, BID
     Route: 048
     Dates: start: 20200515, end: 20210316

REACTIONS (2)
  - Drug interaction [Unknown]
  - Hyponatraemia [Recovered/Resolved]

NARRATIVE: CASE EVENT DATE: 20210313
